FAERS Safety Report 10378806 (Version 3)
Quarter: 2015Q2

REPORT INFORMATION
  Report Type: Spontaneous
  Country: US (occurrence: None)
  Receive Date: 20140808
  Receipt Date: 20150402
  Transmission Date: 20150821
  Serious: Yes (Death)
  Sender: FDA-Public Use
  Company Number: 2014-US-009813

PATIENT
  Age: 34 Year
  Sex: Female

DRUGS (12)
  1. LEVOTHYROXINE SODIUM. [Concomitant]
     Active Substance: LEVOTHYROXINE SODIUM
  2. BAG BALM (HYDROXYQUINOLINE SULFATE) [Concomitant]
  3. FAZACLO [Suspect]
     Active Substance: CLOZAPINE
     Route: 048
     Dates: start: 20131112
  4. DOCUSATE SODIUM. [Concomitant]
     Active Substance: DOCUSATE SODIUM
  5. FIBER (POLYCARBOPHIL CALCIUM) [Concomitant]
     Active Substance: CALCIUM POLYCARBOPHIL
  6. TRINESSA (ETHINYLESTRADIOL, NORGESTIMATE) [Concomitant]
  7. BENZOYL PEROXIDE. [Concomitant]
     Active Substance: BENZOYL PEROXIDE
  8. LORATADINE. [Concomitant]
     Active Substance: LORATADINE
  9. FERROUS SULFATE [Concomitant]
     Active Substance: FERROUS SULFATE\FERROUS SULFATE, DRIED
  10. LAMOTRIGINE. [Concomitant]
     Active Substance: LAMOTRIGINE
  11. FLUTICASONE [Concomitant]
     Active Substance: FLUTICASONE\FLUTICASONE PROPIONATE
  12. VITAMIN C [Concomitant]
     Active Substance: ASCORBIC ACID

REACTIONS (3)
  - Asphyxia [None]
  - White blood cell count decreased [None]
  - Completed suicide [None]

NARRATIVE: CASE EVENT DATE: 20140728
